FAERS Safety Report 7584489-5 (Version None)
Quarter: 2011Q2

REPORT INFORMATION
  Report Type: 
  Country: None (occurrence: None)
  Receive Date: 20110630
  Receipt Date: 20110622
  Transmission Date: 20111010
  Serious: Yes (Other)
  Sender: FDA-Public Use
  Company Number: FR-ALLERGAN-1108457US

PATIENT
  Age: 64 Year
  Sex: Female

DRUGS (4)
  1. CERETIDE [Concomitant]
     Dosage: 500 MG
  2. BUDESONIDE [Concomitant]
  3. LUMIGAN [Suspect]
     Indication: GLAUCOMA
     Dosage: 1 GTT, QD
     Dates: start: 20110620
  4. HYDROCORTISONE [Concomitant]
     Dosage: 50 MG, QD

REACTIONS (1)
  - ANGIOEDEMA [None]
